FAERS Safety Report 24139330 (Version 1)
Quarter: 2024Q3

REPORT INFORMATION
  Report Type: Spontaneous
  Country: CN (occurrence: CN)
  Receive Date: 20240726
  Receipt Date: 20240726
  Transmission Date: 20241017
  Serious: Yes (Hospitalization)
  Sender: STRIDES
  Company Number: CN-STRIDES ARCOLAB LIMITED-2024SP009203

PATIENT
  Age: 1 Year
  Sex: Female

DRUGS (6)
  1. VANCOMYCIN [Interacting]
     Active Substance: VANCOMYCIN
     Indication: Pneumococcal infection
     Dosage: UNK
     Route: 065
  2. VANCOMYCIN [Interacting]
     Active Substance: VANCOMYCIN
     Indication: Meningitis pneumococcal
  3. DEXAMETHASONE [Interacting]
     Active Substance: DEXAMETHASONE
     Indication: Pneumococcal infection
     Dosage: UNK
     Route: 065
  4. DEXAMETHASONE [Interacting]
     Active Substance: DEXAMETHASONE
     Indication: Meningitis pneumococcal
  5. CEFTRIAXONE [Concomitant]
     Active Substance: CEFTRIAXONE\CEFTRIAXONE SODIUM
     Indication: Pneumococcal infection
     Dosage: UNK
     Route: 065
  6. CEFTRIAXONE [Concomitant]
     Active Substance: CEFTRIAXONE\CEFTRIAXONE SODIUM
     Indication: Meningitis pneumococcal

REACTIONS (3)
  - Drug interaction [Unknown]
  - Drug level below therapeutic [Unknown]
  - Off label use [Unknown]
